FAERS Safety Report 9743219 (Version 1)
Quarter: 2013Q4

REPORT INFORMATION
  Report Type: Spontaneous
  Country: US (occurrence: US)
  Receive Date: 20131210
  Receipt Date: 20131210
  Transmission Date: 20140711
  Serious: No
  Sender: FDA-Public Use
  Company Number: US-GILEAD-2009-0024983

PATIENT
  Sex: Male
  Weight: 145.15 kg

DRUGS (22)
  1. LETAIRIS [Suspect]
     Indication: PULMONARY ARTERIAL HYPERTENSION
     Route: 048
     Dates: start: 20091005
  2. ALLOPURINOL [Concomitant]
  3. UROXATRAL [Concomitant]
  4. GLIPIZIDE [Concomitant]
  5. ROPINIROLE HCL [Concomitant]
  6. FLUTICASONE [Concomitant]
  7. TRICOR [Concomitant]
  8. LANTUS [Concomitant]
  9. CARVEDILOL [Concomitant]
  10. FAMOTIDINE [Concomitant]
  11. TORSEMIDE [Concomitant]
  12. SIMVASTATIN [Concomitant]
  13. SILVER SULFADIAZINE [Concomitant]
  14. POTASSIUM CHLORIDE [Concomitant]
  15. METANX [Concomitant]
  16. ADVIL [Concomitant]
  17. CATAPRES-TTS [Concomitant]
  18. COLCHICINE [Concomitant]
  19. PLAVIX [Concomitant]
  20. HYDROCODONE-APAP [Concomitant]
  21. RANEXA [Concomitant]
  22. ADULT ASPIRIN [Concomitant]

REACTIONS (1)
  - Swelling [Unknown]
